FAERS Safety Report 13194946 (Version 2)
Quarter: 2017Q1

REPORT INFORMATION
  Report Type: Report from Study
  Country: JP (occurrence: JP)
  Receive Date: 20170207
  Receipt Date: 20170221
  Transmission Date: 20170428
  Serious: Yes (Death, Hospitalization, Other)
  Sender: FDA-Public Use
  Company Number: JP-ELI_LILLY_AND_COMPANY-JP201701004240

PATIENT
  Age: 86 Year
  Sex: Male
  Weight: 47 kg

DRUGS (8)
  1. PRASUGREL HYDROCHLORIDE [Suspect]
     Active Substance: PRASUGREL HYDROCHLORIDE
     Indication: ACUTE MYOCARDIAL INFARCTION
     Dosage: 15 MG, QD, LOADING DOSE
     Route: 048
     Dates: start: 20151218, end: 20151218
  2. PRASUGREL HYDROCHLORIDE [Suspect]
     Active Substance: PRASUGREL HYDROCHLORIDE
     Dosage: 2.5 MG, QD
     Route: 048
     Dates: start: 20151219, end: 20160412
  3. NEXIUM [Concomitant]
     Active Substance: ESOMEPRAZOLE MAGNESIUM
     Dosage: UNK
     Route: 048
     Dates: end: 20160412
  4. ATELEC [Concomitant]
     Active Substance: CILNIDIPINE
     Dosage: UNK
     Route: 048
     Dates: end: 20160412
  5. ASPIRIN                            /00002701/ [Concomitant]
     Active Substance: ASPIRIN
     Dosage: 100 MG, UNK
     Route: 048
     Dates: end: 20160412
  6. CRESTOR [Concomitant]
     Active Substance: ROSUVASTATIN CALCIUM
     Dosage: UNK
     Route: 048
     Dates: end: 20160412
  7. ACTOS [Concomitant]
     Active Substance: PIOGLITAZONE HYDROCHLORIDE
     Dosage: UNK
     Route: 048
     Dates: end: 20160412
  8. SULBACILLIN [Suspect]
     Active Substance: AMPICILLIN SODIUM\SULBACTAM SODIUM
     Indication: PRODUCT USED FOR UNKNOWN INDICATION
     Dosage: UNK, UNKNOWN
     Route: 042
     Dates: start: 20160404, end: 20160416

REACTIONS (4)
  - Dementia [Unknown]
  - Subarachnoid haemorrhage [Fatal]
  - Coma [Unknown]
  - Pneumonia aspiration [Recovering/Resolving]

NARRATIVE: CASE EVENT DATE: 20160404
